FAERS Safety Report 8065267-X (Version None)
Quarter: 2011Q4

REPORT INFORMATION
  Report Type: 
  Country: None (occurrence: None)
  Receive Date: 20111221
  Receipt Date: 20110823
  Transmission Date: 20120403
  Serious: Yes (Other)
  Sender: FDA-Public Use
  Company Number: PHHY2011US35086

PATIENT
  Age: 15 Year
  Sex: Female

DRUGS (1)
  1. EXJADE [Suspect]
     Indication: BLOOD IRON DECREASED
     Dosage: 250 MG, QD, ORAL
     Route: 048

REACTIONS (1)
  - BLOOD IRON INCREASED [None]
